FAERS Safety Report 10991040 (Version 1)
Quarter: 2015Q2

REPORT INFORMATION
  Report Type: Spontaneous
  Country: US (occurrence: US)
  Receive Date: 20150406
  Receipt Date: 20150406
  Transmission Date: 20150821
  Serious: Yes (Hospitalization, Other)
  Sender: FDA-Public Use
  Company Number: US-GLAXOSMITHKLINE-US2015GSK045377

PATIENT
  Age: 74 Year
  Sex: Female
  Weight: 61.68 kg

DRUGS (9)
  1. HYCAMTIN [Suspect]
     Active Substance: TOPOTECAN HYDROCHLORIDE
     Indication: METASTASES TO LUNG
  2. VITAMIN D-3 [Concomitant]
  3. POTASSIUM [Concomitant]
     Active Substance: POTASSIUM
  4. HYCAMTIN [Suspect]
     Active Substance: TOPOTECAN HYDROCHLORIDE
     Indication: METASTASES TO LUNG
     Dosage: 3 DF, QD
     Route: 048
     Dates: start: 20140903
  5. OMEPRAZOLE. [Concomitant]
     Active Substance: OMEPRAZOLE
  6. SINGULAIR [Concomitant]
     Active Substance: MONTELUKAST SODIUM
  7. LOVENOX [Concomitant]
     Active Substance: ENOXAPARIN SODIUM
  8. ZOMETA [Concomitant]
     Active Substance: ZOLEDRONIC ACID
  9. VITAMIN C [Concomitant]
     Active Substance: ASCORBIC ACID

REACTIONS (2)
  - Rectal haemorrhage [Unknown]
  - Blood test abnormal [Unknown]

NARRATIVE: CASE EVENT DATE: 20150301
